FAERS Safety Report 14214506 (Version 1)
Quarter: 2017Q4

REPORT INFORMATION
  Report Type: Spontaneous
  Country: US (occurrence: US)
  Receive Date: 20171122
  Receipt Date: 20171122
  Transmission Date: 20180321
  Serious: No
  Sender: FDA-Public Use
  Company Number: US-ROCHE-1930072

PATIENT
  Age: 14 Month

DRUGS (2)
  1. PULMOZYME [Suspect]
     Active Substance: DORNASE ALFA
     Indication: PNEUMONIA
     Dosage: IN TOTAL VOLUME OF 10ML NORMAL SALINE
     Route: 034
  2. ACTIVASE [Suspect]
     Active Substance: ALTEPLASE
     Indication: PNEUMONIA
     Dosage: IN TOTAL VOLUME OF 10ML NORMAL SALINE
     Route: 034

REACTIONS (2)
  - Off label use [Unknown]
  - No adverse event [Unknown]
